FAERS Safety Report 8571789-5 (Version None)
Quarter: 2012Q3

REPORT INFORMATION
  Report Type: 
  Country: None (occurrence: None)
  Receive Date: 20120806
  Receipt Date: 20120703
  Transmission Date: 20120928
  Serious: No
  Sender: FDA-Public Use
  Company Number: US-009507513-1207USA001640

PATIENT

DRUGS (8)
  1. LISINOPRIL [Concomitant]
     Dosage: 10 MG, UNK
  2. IBUPROFEN (ADVIL) [Concomitant]
     Dosage: 200 MG, UNK
  3. REBETOL [Concomitant]
     Dosage: 200 MG, UNK
  4. VITAMINS (UNSPECIFIED) [Concomitant]
  5. PEGASYS [Concomitant]
  6. EXCEDRIN (MIGRAINE) [Concomitant]
  7. VICTRELIS [Suspect]
     Dosage: 800 MG, TID
     Route: 048
  8. PROCRIT [Concomitant]
     Dosage: 10000 / ML

REACTIONS (1)
  - DYSGEUSIA [None]
